FAERS Safety Report 11000086 (Version 1)
Quarter: 2015Q2

REPORT INFORMATION
  Report Type: Spontaneous
  Country: CO (occurrence: CO)
  Receive Date: 20150408
  Receipt Date: 20150408
  Transmission Date: 20150821
  Serious: Yes (Death)
  Sender: FDA-Public Use
  Company Number: CO-ASTELLAS-2015US011426

PATIENT
  Age: 61 Year
  Sex: Male

DRUGS (1)
  1. PROGRAF [Suspect]
     Active Substance: TACROLIMUS\TACROLIMUS ANHYDROUS
     Indication: RENAL TRANSPLANT
     Dosage: 5 MG,  IN 24 HOUR
     Route: 048
     Dates: start: 20130712

REACTIONS (1)
  - Cardio-respiratory arrest [Fatal]

NARRATIVE: CASE EVENT DATE: 20150101
